FAERS Safety Report 9791681 (Version 1)
Quarter: 2014Q1

REPORT INFORMATION
  Report Type: Report from Study
  Country: US (occurrence: US)
  Receive Date: 20140102
  Receipt Date: 20140102
  Transmission Date: 20141002
  Serious: Yes (Death)
  Sender: FDA-Public Use
  Company Number: US-ROCHE-1327157

PATIENT
  Age: 75 Year
  Sex: Female

DRUGS (5)
  1. LUCENTIS [Suspect]
     Indication: AGE-RELATED MACULAR DEGENERATION
     Dosage: RIGHT EYE
     Route: 050
     Dates: start: 20091109, end: 201102
  2. AVASTIN [Suspect]
     Indication: AGE-RELATED MACULAR DEGENERATION
     Route: 065
     Dates: start: 20090603
  3. COUMADIN [Concomitant]
     Indication: THROMBOSIS
  4. CATAPRES [Concomitant]
     Indication: HYPERTENSION
  5. NITROSTAT [Concomitant]

REACTIONS (1)
  - Death [Fatal]
